FAERS Safety Report 10338080 (Version 1)
Quarter: 2014Q3

REPORT INFORMATION
  Report Type: Report from Study
  Country: CA (occurrence: CA)
  Receive Date: 20140724
  Receipt Date: 20140724
  Transmission Date: 20150326
  Serious: Yes (Hospitalization)
  Sender: FDA-Public Use
  Company Number: CA-JNJFOC-20140712343

PATIENT
  Age: 47 Year
  Sex: Male
  Weight: 77 kg

DRUGS (10)
  1. FLORINEF ACETATE [Concomitant]
     Active Substance: FLUDROCORTISONE ACETATE
     Route: 048
  2. FOLIC ACID. [Concomitant]
     Active Substance: FOLIC ACID
     Route: 048
  3. RABEPRAZOLE [Concomitant]
     Active Substance: RABEPRAZOLE
     Route: 048
  4. VITAMIN B12 [Concomitant]
     Active Substance: CYANOCOBALAMIN
     Route: 048
  5. METHOTREXATE [Concomitant]
     Active Substance: METHOTREXATE
     Route: 065
  6. WARFARIN [Concomitant]
     Active Substance: WARFARIN
     Route: 065
  7. REMICADE [Suspect]
     Active Substance: INFLIXIMAB
     Indication: CROHN^S DISEASE
     Route: 042
     Dates: start: 201202
  8. LACTULOSE. [Concomitant]
     Active Substance: LACTULOSE
     Route: 048
  9. FERROUS GLUCONATE [Concomitant]
     Active Substance: FERROUS GLUCONATE
     Route: 048
  10. PENTASA [Concomitant]
     Active Substance: MESALAMINE
     Route: 048

REACTIONS (3)
  - Fatigue [Not Recovered/Not Resolved]
  - Eating disorder [Not Recovered/Not Resolved]
  - Abdominal discomfort [Not Recovered/Not Resolved]

NARRATIVE: CASE EVENT DATE: 20140714
